FAERS Safety Report 9846646 (Version 1)
Quarter: 2014Q1

REPORT INFORMATION
  Report Type: Spontaneous
  Country: JP (occurrence: JP)
  Receive Date: 20140127
  Receipt Date: 20140127
  Transmission Date: 20141002
  Serious: Yes (Other)
  Sender: FDA-Public Use
  Company Number: JP-GLAXOSMITHKLINE-B0963153A

PATIENT
  Age: 17 Year
  Sex: Male

DRUGS (4)
  1. RELENZA [Suspect]
     Indication: INFLUENZA
     Dosage: 10MG TWICE PER DAY
     Route: 055
     Dates: start: 20140118, end: 20140120
  2. CALONAL [Concomitant]
     Route: 048
  3. MEDICON [Concomitant]
     Indication: COUGH
     Dosage: 15MG THREE TIMES PER DAY
     Route: 048
     Dates: start: 20140118, end: 20140120
  4. MUCODYNE [Concomitant]
     Indication: PRODUCTIVE COUGH
     Dosage: 500MG THREE TIMES PER DAY
     Route: 048
     Dates: start: 20140118, end: 20140120

REACTIONS (8)
  - Mental impairment [Unknown]
  - Irritability [Unknown]
  - Grimacing [Unknown]
  - Restlessness [Unknown]
  - Feeling abnormal [Unknown]
  - Headache [Unknown]
  - Malaise [Unknown]
  - Abnormal behaviour [Unknown]
